FAERS Safety Report 21895310 (Version 4)
Quarter: 2023Q2

REPORT INFORMATION
  Report Type: Report from Study
  Country: CA (occurrence: CA)
  Receive Date: 20230123
  Receipt Date: 20230606
  Transmission Date: 20230722
  Serious: Yes (Hospitalization)
  Sender: FDA-Public Use
  Company Number: CA-ABBVIE-4169541

PATIENT
  Age: 63 Year
  Sex: Female
  Weight: 63.6 kg

DRUGS (30)
  1. UPADACITINIB [Suspect]
     Active Substance: UPADACITINIB
     Indication: Dermatitis atopic
     Route: 048
     Dates: start: 20220725, end: 20220823
  2. UPADACITINIB [Suspect]
     Active Substance: UPADACITINIB
     Indication: Dermatitis atopic
     Route: 048
     Dates: start: 20220824, end: 20220911
  3. UPADACITINIB [Suspect]
     Active Substance: UPADACITINIB
     Indication: Dermatitis atopic
     Route: 048
     Dates: start: 20220914, end: 20230112
  4. UPADACITINIB [Suspect]
     Active Substance: UPADACITINIB
     Indication: Dermatitis atopic
     Route: 048
     Dates: start: 20230127
  5. HYDROVAL 0.2% [Concomitant]
     Indication: Dermatitis atopic
     Dosage: TIME INTERVAL: AS NECESSARY: DOSAGE: 1 APPLICATION
     Route: 061
     Dates: start: 20130925
  6. UREMOL 20 [Concomitant]
     Indication: Dermatitis atopic
     Dosage: DOSAGE: 1 APPLICATION
     Route: 061
     Dates: start: 20160201, end: 202008
  7. NUCALA [Concomitant]
     Active Substance: MEPOLIZUMAB
     Indication: Asthma
     Route: 058
     Dates: start: 202001
  8. ZENHALE [Concomitant]
     Active Substance: FORMOTEROL FUMARATE\MOMETASONE FUROATE
     Indication: Asthma
     Dosage: 2 INHALATION
     Route: 055
     Dates: start: 20220902
  9. SPIRIVA RESPIMAT [Concomitant]
     Active Substance: TIOTROPIUM BROMIDE
     Indication: Asthma
     Dosage: 2 INHALATION
     Route: 055
     Dates: start: 20220902
  10. SINGULAIR [Concomitant]
     Active Substance: MONTELUKAST SODIUM
     Indication: Asthma
     Route: 048
     Dates: start: 202001
  11. PROTOPIC [Concomitant]
     Active Substance: TACROLIMUS
     Indication: Dermatitis atopic
     Dosage: TIME INTERVAL: AS NECESSARY: 1 APPLICATION
     Route: 061
     Dates: start: 20220210
  12. MOMETASONE [Concomitant]
     Active Substance: MOMETASONE
     Indication: Rhinorrhoea
     Dosage: 4 SPRAY
     Route: 045
     Dates: start: 20210111
  13. OLOPATADINE [Concomitant]
     Active Substance: OLOPATADINE
     Indication: Rhinorrhoea
     Dosage: TIME INTERVAL: AS NECESSARY: 2 DROP
     Route: 047
     Dates: start: 20220210
  14. DEXILANT [Concomitant]
     Active Substance: DEXLANSOPRAZOLE
     Indication: Gastrooesophageal reflux disease
     Dosage: TIME INTERVAL: AS NECESSARY
     Route: 048
     Dates: start: 20211125
  15. ESTRADIOL [Concomitant]
     Active Substance: ESTRADIOL
     Indication: Menopause
     Route: 048
     Dates: start: 2008
  16. AMLODIPINE [Concomitant]
     Active Substance: AMLODIPINE BESYLATE
     Indication: Hypertension
     Route: 048
     Dates: start: 2017
  17. PROPRANOLOL [Concomitant]
     Active Substance: PROPRANOLOL HYDROCHLORIDE
     Indication: Migraine
     Route: 048
     Dates: start: 2007
  18. SUMATRIPTAN [Concomitant]
     Active Substance: SUMATRIPTAN
     Indication: Migraine
     Dosage: AS NEEDED
     Route: 048
     Dates: start: 1989
  19. CHOLECALCIFEROL [Concomitant]
     Active Substance: CHOLECALCIFEROL
     Indication: Osteoporosis
     Route: 048
     Dates: start: 20211125
  20. M Cal [Concomitant]
     Indication: Osteoporosis
     Route: 048
     Dates: start: 20211125
  21. SYNTHROID [Concomitant]
     Active Substance: LEVOTHYROXINE SODIUM
     Indication: Hypothyroidism
     Route: 048
     Dates: start: 20211125
  22. Systane drops [Concomitant]
     Indication: Conjunctivitis
     Dosage: 4 DROPS AS NEEDED
     Route: 047
     Dates: start: 202111
  23. Systane Eyelid cleansing?wipes [Concomitant]
     Indication: Conjunctivitis
     Dosage: AS NEEDED /1 APPLICATION
     Route: 061
     Dates: start: 202111
  24. ACETAMINOPHEN [Concomitant]
     Active Substance: ACETAMINOPHEN
     Indication: Neck pain
     Dosage: AS NEEDED
     Route: 048
     Dates: start: 1980
  25. TYLENOL [Concomitant]
     Active Substance: ACETAMINOPHEN
     Indication: Bronchitis
     Dosage: TIME INTERVAL: AS NECESSARY
     Route: 048
     Dates: start: 20221124, end: 20221128
  26. SODIUM BICARBONATE\SODIUM CHLORIDE [Concomitant]
     Active Substance: SODIUM BICARBONATE\SODIUM CHLORIDE
     Indication: Nasal congestion
     Dosage: DOSE: 1 INHALATION
     Route: 045
     Dates: start: 20221124, end: 202301
  27. HYDROCORTISONE VALERATE [Concomitant]
     Active Substance: HYDROCORTISONE VALERATE
     Indication: Acne
     Dosage: TIME INTERVAL: AS NECESSARY: 0.2%, 1 APPLICATION
     Route: 061
     Dates: start: 20220801, end: 20221215
  28. PROTOPIC [Concomitant]
     Active Substance: TACROLIMUS
     Indication: Acne
     Dosage: TIME INTERVAL: AS NECESSARY: 0.03%, 1 APPLICATION
     Route: 061
     Dates: start: 20220801, end: 20221215
  29. PREDNISONE [Concomitant]
     Active Substance: PREDNISONE
     Indication: Bronchitis
     Route: 048
     Dates: start: 20221028, end: 20221101
  30. PREDNISONE [Concomitant]
     Active Substance: PREDNISONE
     Indication: Bronchitis
     Route: 048
     Dates: start: 20221102, end: 20221106

REACTIONS (7)
  - Atypical mycobacterium test positive [Not Recovered/Not Resolved]
  - Bronchitis [Not Recovered/Not Resolved]
  - Vaginal infection [Recovered/Resolved]
  - Acne [Recovered/Resolved]
  - Bronchitis [Not Recovered/Not Resolved]
  - SARS-CoV-2 test positive [Not Recovered/Not Resolved]
  - Nasal congestion [Recovered/Resolved]

NARRATIVE: CASE EVENT DATE: 20220801
